FAERS Safety Report 13590387 (Version 1)
Quarter: 2017Q2

REPORT INFORMATION
  Report Type: Spontaneous
  Country: US (occurrence: US)
  Receive Date: 20170529
  Receipt Date: 20170529
  Transmission Date: 20170830
  Serious: Yes (Other)
  Sender: FDA-Public Use
  Company Number: None

PATIENT
  Age: 58 Year
  Sex: Female
  Weight: 76.5 kg

DRUGS (17)
  1. PREMARIN [Concomitant]
     Active Substance: ESTROGENS, CONJUGATED
  2. VACYCLOVIR [Concomitant]
  3. DICLOFENAC POTASSIUM. [Concomitant]
     Active Substance: DICLOFENAC POTASSIUM
  4. LINZESS [Concomitant]
     Active Substance: LINACLOTIDE
  5. OMEGA 3 [Concomitant]
     Active Substance: OMEGA-3 FATTY ACIDS
  6. OXCARBAZEPINE. [Suspect]
     Active Substance: OXCARBAZEPINE
     Indication: BIPOLAR DISORDER
     Dosage: ?          QUANTITY:1 TABLET(S);?
     Route: 048
     Dates: start: 20170124
  7. FUTICASONE [Concomitant]
  8. PROVENTIL HFA [Concomitant]
     Active Substance: ALBUTEROL SULFATE
  9. LEXIPRO [Concomitant]
  10. CENTRUM SILVER MULTIVITAMIN [Concomitant]
  11. ATENOLOL. [Concomitant]
     Active Substance: ATENOLOL
  12. IDOCAINE [Concomitant]
  13. TRAZODONE [Concomitant]
     Active Substance: TRAZODONE HYDROCHLORIDE
  14. HYDRALAZINE [Concomitant]
     Active Substance: HYDRALAZINE HYDROCHLORIDE
  15. ZYRTEC [Concomitant]
     Active Substance: CETIRIZINE HYDROCHLORIDE
  16. VITAMIN D [Concomitant]
     Active Substance: CHOLECALCIFEROL
  17. VITAMIN B COMPLEX [Concomitant]
     Active Substance: CYANOCOBALAMIN\DEXPANTHENOL\NIACINAMIDE\PYRIDOXINE HYDROCHLORIDE\RIBOFLAVIN 5^-PHOSPHATE SODIUM\THIAMINE HYDROCHLORIDE\VITAMIN B COMPLEX

REACTIONS (6)
  - Disorientation [None]
  - Fall [None]
  - Drooling [None]
  - Impaired work ability [None]
  - Cerebral circulatory failure [None]
  - Disturbance in attention [None]

NARRATIVE: CASE EVENT DATE: 20170219
